FAERS Safety Report 25876569 (Version 1)
Quarter: 2025Q4

REPORT INFORMATION
  Report Type: Spontaneous
  Country: JP (occurrence: None)
  Receive Date: 20251003
  Receipt Date: 20251003
  Transmission Date: 20260118
  Serious: Yes (Other)
  Sender: ORGANON
  Company Number: JP-ORGANON-O2509JPN002450

PATIENT
  Age: 59 Year
  Sex: Male

DRUGS (3)
  1. CARBIDOPA\LEVODOPA [Suspect]
     Active Substance: CARBIDOPA\LEVODOPA
     Indication: Parkinson^s disease
     Dosage: 6 DOSAGE FORM
  2. CARBIDOPA\LEVODOPA [Suspect]
     Active Substance: CARBIDOPA\LEVODOPA
     Dosage: 3 DOSAGE FORM
  3. CARBIDOPA\LEVODOPA [Suspect]
     Active Substance: CARBIDOPA\LEVODOPA
     Dosage: 4.5 DOSAGE FORM

REACTIONS (13)
  - Parkinson^s disease [Unknown]
  - Physical deconditioning [Unknown]
  - Apathy [Unknown]
  - Neck deformity [Unknown]
  - Nerve injury [Unknown]
  - Balance disorder [Unknown]
  - Anxiety disorder [Unknown]
  - Depression [Unknown]
  - Muscle spasms [Unknown]
  - Orthostatic hypotension [Unknown]
  - Hypoaesthesia [Unknown]
  - Insomnia [Unknown]
  - Therapeutic product effect incomplete [Unknown]
